FAERS Safety Report 12835969 (Version 1)
Quarter: 2016Q4

REPORT INFORMATION
  Report Type: Spontaneous
  Country: FR (occurrence: FR)
  Receive Date: 20161011
  Receipt Date: 20161011
  Transmission Date: 20170207
  Serious: Yes (Other)
  Sender: FDA-Public Use
  Company Number: FR-PFIZER INC-2016455218

PATIENT
  Age: 66 Year
  Sex: Male

DRUGS (3)
  1. RITUXIMAB [Concomitant]
     Active Substance: RITUXIMAB
     Indication: MANTLE CELL LYMPHOMA
     Dosage: UNK, EVERY 2 MONTHS
     Dates: start: 201509
  2. CARBOPLATINE HOSPIRA [Suspect]
     Active Substance: CARBOPLATIN
     Indication: MANTLE CELL LYMPHOMA
     Dosage: 550 MG, ON DAY 1
     Route: 041
     Dates: start: 20160916, end: 20160916
  3. RITUXIMAB [Concomitant]
     Active Substance: RITUXIMAB
     Dosage: 750 MG, ON DAY1
     Route: 042
     Dates: start: 20160916

REACTIONS (1)
  - Monoparesis [Recovered/Resolved]

NARRATIVE: CASE EVENT DATE: 20160916
